FAERS Safety Report 24737357 (Version 1)
Quarter: 2024Q4

REPORT INFORMATION
  Report Type: Spontaneous
  Country: GB (occurrence: GB)
  Receive Date: 20241216
  Receipt Date: 20241216
  Transmission Date: 20250115
  Serious: Yes (Other)
  Sender: TEVA
  Company Number: GB-MHRA-TPP37153954C17956076YC1733486905601

PATIENT
  Age: 66 Year
  Sex: Female
  Weight: 70 kg

DRUGS (19)
  1. LEVOFLOXACIN [Suspect]
     Active Substance: LEVOFLOXACIN
     Indication: Ill-defined disorder
     Route: 065
     Dates: start: 20241204, end: 20241205
  2. LEVOFLOXACIN [Concomitant]
     Active Substance: LEVOFLOXACIN
     Indication: Ill-defined disorder
     Dosage: ONE TABLET TWICE DAILY, DAILY DOSE: 2 DOSAGE FORM DAILY
     Route: 065
     Dates: start: 20241204
  3. DOXYCYCLINE [Concomitant]
     Active Substance: DOXYCYCLINE
     Indication: Ill-defined disorder
     Dosage: TWO NOW THEN ONE DAILY
     Route: 065
     Dates: start: 20241028, end: 20241104
  4. TIOTROPIUM [Concomitant]
     Active Substance: TIOTROPIUM
     Indication: Ill-defined disorder
     Dosage: TWO PUFFS ONCE DAILY, DAILY DOSE: 2 DOSAGE FORM DAILY
     Route: 055
     Dates: start: 20240806, end: 20241014
  5. PREDNISOLONE [Concomitant]
     Active Substance: PREDNISOLONE
     Indication: Ill-defined disorder
     Dosage: TAKE SIX TABLETS (30MG)
     Route: 065
     Dates: start: 20241028, end: 20241102
  6. TRIMETHOPRIM [Concomitant]
     Active Substance: TRIMETHOPRIM
     Indication: Ill-defined disorder
     Dosage: TAKE ONE TWICE DAILY, DAILY DOSE: 2 DOSAGE FORM DAILY
     Route: 065
     Dates: start: 20240909, end: 20240916
  7. SPIRIVA [Concomitant]
     Active Substance: TIOTROPIUM BROMIDE MONOHYDRATE
     Indication: Ill-defined disorder
     Dosage: TWO PUFFS ONCE DAILY, DAILY DOSE: 2 DOSAGE FORM DAILY
     Route: 055
     Dates: start: 20240531
  8. BECLOMETHASONE\FORMOTEROL [Concomitant]
     Active Substance: BECLOMETHASONE\FORMOTEROL
     Indication: Ill-defined disorder
     Dosage: TWO PUFFS TWICE DAILY VIA SPACER, DAILY DOSE: 2 DOSAGE FORM
     Route: 055
     Dates: start: 20240806
  9. MONTELUKAST [Concomitant]
     Active Substance: MONTELUKAST SODIUM
     Indication: Ill-defined disorder
     Dosage: TAKE ONE AT NIGHT
     Route: 065
     Dates: start: 20240806
  10. OMEPRAZOLE [Concomitant]
     Active Substance: OMEPRAZOLE
     Indication: Ill-defined disorder
     Dosage: TAKE ONE TWICE DAILY, DAILY DOSE: 2 DOSAGE FORM DAILY
     Route: 065
     Dates: start: 20240806
  11. MOMETASONE [Concomitant]
     Active Substance: MOMETASONE
     Indication: Ill-defined disorder
     Dosage: INSTILL TWO SPRAYS INTO THE AFFECTED NOSTRIL(S)...
     Route: 065
     Dates: start: 20240229
  12. ASPIRIN [Concomitant]
     Active Substance: ASPIRIN
     Indication: Ill-defined disorder
     Dosage: TAKE ONE IN THE MORNING - BUYS OTC, DAILY DOSE: 1 DOSAGE FORM DAILY
     Route: 065
     Dates: start: 20240229
  13. ALBUTEROL [Concomitant]
     Active Substance: ALBUTEROL
     Indication: Ill-defined disorder
     Dosage: 1 OR 2 PUFFS UP TO FOUR TIMES A DAY AS REQUIRED
     Route: 055
     Dates: start: 20240806
  14. FEXOFENADINE [Concomitant]
     Active Substance: FEXOFENADINE HYDROCHLORIDE
     Indication: Ill-defined disorder
     Dosage: TAKE ONE DAILY, DAILY DOSE: 1 DOSAGE FORM DAILY
     Route: 065
     Dates: start: 20240806
  15. RANITIDINE HYDROCHLORIDE [Concomitant]
     Active Substance: RANITIDINE HYDROCHLORIDE
     Indication: Ill-defined disorder
     Dosage: 2X5ML SPOONFULS UP TO FOUR TIMES PER DAY. USE A...
     Route: 065
     Dates: start: 20240229
  16. ESTRADIOL [Concomitant]
     Active Substance: ESTRADIOL
     Indication: Ill-defined disorder
     Dosage: INSERT ONE PESSARY DAILY FOR A WEEK THEN TWICE ...
     Route: 065
     Dates: start: 20240911, end: 20241204
  17. AMLODIPINE [Concomitant]
     Active Substance: AMLODIPINE BESYLATE
     Indication: Ill-defined disorder
     Dosage: TAKE ONE IN THE MORNING, DAILY DOSE: 1 DOSAGE FORM DAILY
     Route: 065
     Dates: start: 20240806
  18. ATORVASTATIN [Concomitant]
     Active Substance: ATORVASTATIN
     Indication: Ill-defined disorder
     Dosage: TAKE ONE AT NIGHT, DAILY DOSE: 1 DOSAGE FORM DAILY
     Route: 065
     Dates: start: 20240806
  19. IVABRADINE [Concomitant]
     Active Substance: IVABRADINE
     Indication: Ill-defined disorder
     Dosage: TAKE ONE TWICE DAILY, DAILY DOSE: 2 DOSAGE FORM DAILY
     Route: 065
     Dates: start: 20240806

REACTIONS (2)
  - Dizziness [Recovered/Resolved]
  - Dry mouth [Recovered/Resolved]

NARRATIVE: CASE EVENT DATE: 20241205
